FAERS Safety Report 6074428-0 (Version None)
Quarter: 2009Q1

REPORT INFORMATION
  Report Type: 
  Country: None (occurrence: None)
  Receive Date: 20090206
  Receipt Date: 20090126
  Transmission Date: 20090719
  Serious: Yes (Other)
  Sender: FDA-Public Use
  Company Number: 2009S1001443

PATIENT
  Age: 77 Year
  Sex: Male
  Weight: 80 kg

DRUGS (30)
  1. CAPTOPRIL [Suspect]
     Indication: DRUG USE FOR UNKNOWN INDICATION
     Dosage: 12.5 MG
  2. EPREX [Suspect]
     Indication: NEPHROGENIC ANAEMIA
     Dosage: SEE IMAGE
     Route: 058
     Dates: start: 19990603, end: 20010901
  3. EPREX [Suspect]
     Indication: NEPHROGENIC ANAEMIA
     Dosage: SEE IMAGE
     Route: 058
     Dates: start: 19990603, end: 20010901
  4. EPREX [Suspect]
     Indication: NEPHROGENIC ANAEMIA
     Dosage: SEE IMAGE
     Route: 058
     Dates: start: 19990603, end: 20010901
  5. EPREX [Suspect]
     Indication: NEPHROGENIC ANAEMIA
     Dosage: SEE IMAGE
     Route: 058
     Dates: start: 19990603, end: 20010901
  6. EPREX [Suspect]
     Indication: NEPHROGENIC ANAEMIA
     Dosage: SEE IMAGE
     Route: 058
     Dates: start: 19990603, end: 20010901
  7. EPREX [Suspect]
     Indication: NEPHROGENIC ANAEMIA
     Dosage: SEE IMAGE
     Route: 058
     Dates: start: 19990603, end: 20010901
  8. EPREX [Suspect]
     Indication: NEPHROGENIC ANAEMIA
     Dosage: SEE IMAGE
     Route: 058
     Dates: start: 19990603, end: 20010901
  9. CALCITROL /00514701/ [Concomitant]
  10. DOXAZOSIN MESYLATE [Concomitant]
  11. ACETYLSALICYLIC ACID [Concomitant]
  12. MINIDIAB [Concomitant]
  13. INSULATARD /00030504/ [Concomitant]
  14. METOZOC /00376901/ [Concomitant]
  15. LIPITOR [Concomitant]
  16. MAGNESIUM SULFATE [Concomitant]
  17. DIURAL /00016901/ [Concomitant]
  18. FELODIPINE [Concomitant]
  19. FUROSEMIDE [Concomitant]
  20. SIMVASTATIN [Concomitant]
  21. CARDURA [Concomitant]
  22. THYROXIN [Concomitant]
  23. VITAPLEX [Concomitant]
  24. HYDROXIZINE [Concomitant]
  25. DOXAZOSIN MESYLATE [Concomitant]
  26. ATORVASTATIN [Concomitant]
  27. MAGNESIUM LACTATE [Concomitant]
  28. ROCALTROL [Concomitant]
  29. POTASSIUM CHLORIDE [Concomitant]
  30. ALBYL-E [Concomitant]

REACTIONS (7)
  - ANTI-ERYTHROPOIETIN ANTIBODY POSITIVE [None]
  - APLASIA PURE RED CELL [None]
  - CATHETER RELATED INFECTION [None]
  - DRUG INEFFECTIVE [None]
  - PERITONITIS [None]
  - PLEURAL EFFUSION [None]
  - PNEUMONIA [None]
